FAERS Safety Report 15091047 (Version 1)
Quarter: 2018Q2

REPORT INFORMATION
  Report Type: Spontaneous
  Country: US (occurrence: US)
  Receive Date: 20180629
  Receipt Date: 20180629
  Transmission Date: 20180711
  Serious: No
  Sender: FDA-Public Use
  Company Number: US-AMGEN-USASP2014084628

PATIENT
  Age: 53 Year
  Sex: Female

DRUGS (3)
  1. VITAMIN D3 [Concomitant]
     Active Substance: CHOLECALCIFEROL
  2. CALCIUM [Concomitant]
     Active Substance: CALCIUM
  3. PROLIA [Suspect]
     Active Substance: DENOSUMAB
     Indication: OSTEOPOROSIS POSTMENOPAUSAL
     Dosage: 60 MG, UNK
     Route: 065

REACTIONS (7)
  - Pain in extremity [Unknown]
  - Back disorder [Unknown]
  - Palpitations [Unknown]
  - Back pain [Unknown]
  - Musculoskeletal disorder [Unknown]
  - Intervertebral disc protrusion [Unknown]
  - Rash [Unknown]

NARRATIVE: CASE EVENT DATE: 20141028
